FAERS Safety Report 23335757 (Version 2)
Quarter: 2024Q2

REPORT INFORMATION
  Report Type: Spontaneous
  Country: SE (occurrence: SE)
  Receive Date: 20231225
  Receipt Date: 20240607
  Transmission Date: 20240716
  Serious: Yes (Death)
  Sender: FDA-Public Use
  Company Number: None

PATIENT
  Age: 49 Year
  Sex: Female
  Weight: 60 kg

DRUGS (1)
  1. MABTHERA [Suspect]
     Active Substance: RITUXIMAB
     Indication: Multiple sclerosis relapse
     Route: 065
     Dates: start: 20230301, end: 20230701

REACTIONS (2)
  - Tick-borne viral encephalitis [Fatal]
  - Immunodeficiency [Fatal]

NARRATIVE: CASE EVENT DATE: 20230527
